FAERS Safety Report 25314441 (Version 1)
Quarter: 2025Q2

REPORT INFORMATION
  Report Type: Report from Study
  Country: GB (occurrence: GB)
  Receive Date: 20250514
  Receipt Date: 20250514
  Transmission Date: 20250716
  Serious: Yes (Hospitalization, Other)
  Sender: SANDOZ
  Company Number: GB-SANDOZ-SDZ2024GB008207

PATIENT
  Age: 79 Year
  Sex: Female

DRUGS (1)
  1. OMNITROPE [Suspect]
     Active Substance: SOMATROPIN
     Indication: Hyperpituitarism
     Dosage: 0.6 MG, QD
     Route: 058
     Dates: start: 20231122

REACTIONS (8)
  - Hip fracture [Recovering/Resolving]
  - Road traffic accident [Unknown]
  - Gastric infection [Unknown]
  - Neoplasm [Unknown]
  - Nasopharyngitis [Unknown]
  - Injection site pain [Unknown]
  - Product dose omission issue [Unknown]
  - Product use in unapproved indication [Unknown]

NARRATIVE: CASE EVENT DATE: 20231221
